FAERS Safety Report 10084501 (Version 1)
Quarter: 2014Q2

REPORT INFORMATION
  Report Type: Spontaneous
  Country: US (occurrence: None)
  Receive Date: 20140404
  Receipt Date: 20140404
  Transmission Date: 20141212
  Serious: No
  Sender: FDA-Public Use
  Company Number: 1319305

PATIENT
  Age: 38 Year
  Sex: Female

DRUGS (2)
  1. PERJETA (PERTUZUMAB) [Suspect]
     Indication: PRODUCT USED FOR UNKNOWN INDICATION
  2. HERCEPTIN (TRASTUZUMAB) [Suspect]
     Indication: PRODUCT USED FOR UNKNOWN INDICATION

REACTIONS (3)
  - Aphasia [None]
  - Hypoaesthesia [None]
  - Asthenia [None]
